FAERS Safety Report 9331410 (Version 2)
Quarter: 2013Q3

REPORT INFORMATION
  Report Type: Report from Study
  Country: US (occurrence: US)
  Receive Date: 20130605
  Receipt Date: 20130725
  Transmission Date: 20140515
  Serious: Yes (Other)
  Sender: FDA-Public Use
  Company Number: US-ABBOTT-13P-163-1086795-00

PATIENT
  Age: 65 Year
  Sex: Female

DRUGS (17)
  1. HUMIRA [Suspect]
     Indication: CROHN^S DISEASE
     Dates: start: 20130213
  2. PREDNISONE [Suspect]
     Indication: CROHN^S DISEASE
     Route: 048
  3. IMURAN [Concomitant]
     Indication: CROHN^S DISEASE
     Dosage: 2.5 TABS DAILY
     Route: 048
  4. ASACOL HD [Concomitant]
     Indication: CROHN^S DISEASE
     Dosage: 3 TABS, TWICE DAILY
     Route: 048
  5. CIPROFLOXACIN [Concomitant]
     Indication: CROHN^S DISEASE
     Route: 048
  6. ASPIRIN [Concomitant]
     Indication: CEREBROVASCULAR ACCIDENT
     Route: 048
  7. IRON [Concomitant]
     Indication: HAEMOGLOBIN ABNORMAL
     Route: 048
  8. FOSAMAX [Concomitant]
     Indication: OSTEOPOROSIS
     Route: 048
  9. VITAMIN D [Concomitant]
     Indication: VITAMIN SUPPLEMENTATION
     Route: 048
  10. CALCIUM [Concomitant]
     Indication: MINERAL SUPPLEMENTATION
     Route: 048
  11. CENTRUM SILVER [Concomitant]
     Indication: VITAMIN SUPPLEMENTATION
     Dosage: ONCE DAILY
     Route: 048
  12. FLAX SEED OIL [Concomitant]
     Indication: MACULAR DEGENERATION
     Route: 048
  13. FLAX SEED OIL [Concomitant]
     Indication: PROPHYLAXIS
  14. ZEAXANTHIN [Concomitant]
     Indication: MACULAR DEGENERATION
     Dosage: 2 TABS, ONCE DAILY
  15. ZEAXANTHIN [Concomitant]
     Indication: PROPHYLAXIS
  16. CHOLESTIPOL [Concomitant]
     Indication: CROHN^S DISEASE
     Route: 048
  17. 6-MP [Concomitant]
     Indication: PRODUCT USED FOR UNKNOWN INDICATION

REACTIONS (10)
  - Female genital tract fistula [Unknown]
  - Stress fracture [Recovering/Resolving]
  - Drug ineffective [Not Recovered/Not Resolved]
  - Injection site erythema [Not Recovered/Not Resolved]
  - Injection site papule [Not Recovered/Not Resolved]
  - Injection site pruritus [Not Recovered/Not Resolved]
  - Injection site discolouration [Not Recovered/Not Resolved]
  - Pain in extremity [Not Recovered/Not Resolved]
  - Injection site pain [Not Recovered/Not Resolved]
  - Injection site rash [Not Recovered/Not Resolved]
